FAERS Safety Report 4819493-0 (Version None)
Quarter: 2005Q4

REPORT INFORMATION
  Report Type: 
  Country: None (occurrence: None)
  Receive Date: 20051103
  Receipt Date: 20040518
  Transmission Date: 20060501
  Serious: Yes (Other)
  Sender: FDA-Public Use
  Company Number: JP-BRISTOL-MYERS SQUIBB COMPANY-12591681

PATIENT
  Age: 23 Year
  Sex: Male

DRUGS (10)
  1. ZERIT [Suspect]
     Indication: HIV INFECTION
     Route: 048
     Dates: start: 19971018, end: 20031016
  2. VIDEX EC [Suspect]
     Indication: HIV INFECTION
     Dosage: INITIATED AT 300 MG DAILY, DOSE INCREASED TO 400 MG ON 16-MAY-2001
     Route: 048
     Dates: start: 20010516, end: 20031016
  3. VIDEX [Suspect]
     Indication: HIV INFECTION
     Dosage: INTERRUPTED ON 02-MAY-1997, RESUMED ON 14-MAY-1999 AT 150 MG TWICE DAILY
     Route: 048
     Dates: start: 19941212, end: 20010331
  4. EFAVIRENZ [Suspect]
     Indication: HIV INFECTION
     Route: 048
     Dates: start: 20000403, end: 20031016
  5. REYATAZ [Suspect]
     Indication: HIV INFECTION
     Route: 048
     Dates: start: 20040116
  6. ZIAGEN [Suspect]
     Indication: HIV INFECTION
     Route: 048
     Dates: start: 20000403
  7. VIREAD [Suspect]
     Indication: HIV INFECTION
     Route: 048
     Dates: start: 20031017
  8. NORVIR [Suspect]
     Indication: HIV INFECTION
     Dosage: THERAPY STOPPED ON 03-APR-2000 AND RE-STARTED ON 16-JAN-2004 @ 100 MG DAILY.
     Route: 048
     Dates: start: 19990208
  9. COAGULATION FACTOR IV [Concomitant]
     Route: 042
     Dates: start: 19961101
  10. FACTOR IX COMPLEX [Concomitant]
     Dosage: UNKNOWN TO 31-MAR-2002, 01-APR-2002 TO UNKNOWN.

REACTIONS (2)
  - HEPATIC CIRRHOSIS [None]
  - LIPOATROPHY [None]
